FAERS Safety Report 5061267-2 (Version None)
Quarter: 2006Q3

REPORT INFORMATION
  Report Type: 
  Country: None (occurrence: None)
  Receive Date: 20060720
  Receipt Date: 20060707
  Transmission Date: 20061208
  Serious: Yes (Death, Life-Threatening, Hospitalization)
  Sender: FDA-Public Use
  Company Number: 2006078839

PATIENT
  Age: 70 Year
  Sex: Female
  Weight: 45 kg

DRUGS (9)
  1. ZYVOX [Suspect]
     Indication: PNEUMONIA STAPHYLOCOCCAL
     Dosage: SEE IMAGE
     Route: 042
     Dates: start: 20060607, end: 20060612
  2. ZYVOX [Suspect]
     Indication: PNEUMONIA STAPHYLOCOCCAL
     Dosage: SEE IMAGE
     Route: 042
     Dates: start: 20060613, end: 20060616
  3. TIENAM (CILASTATIN, IMIPENEM) [Concomitant]
  4. PRODIF (FOSFLUCONAZOLE) [Concomitant]
  5. ELASPOL                     (SIVELESTAT) [Concomitant]
  6. SOLU-MEDROL [Concomitant]
  7. MEDROL ACETATE [Concomitant]
  8. FIRSTCIN                 (CEFOZOPRAN HYDROCHLORIDE) [Concomitant]
  9. CYCLOPHOSPHAMIDE [Concomitant]

REACTIONS (6)
  - ACUTE RESPIRATORY FAILURE [None]
  - ANURIA [None]
  - HAEMODIALYSIS [None]
  - MULTI-ORGAN FAILURE [None]
  - PLATELET COUNT DECREASED [None]
  - STENOTROPHOMONAS INFECTION [None]
